FAERS Safety Report 7131709-7 (Version None)
Quarter: 2010Q4

REPORT INFORMATION
  Report Type: 
  Country: None (occurrence: None)
  Receive Date: 20101201
  Receipt Date: 20101118
  Transmission Date: 20110411
  Serious: Yes (Hospitalization, Other)
  Sender: FDA-Public Use
  Company Number: TR-MYLANLABS-2010S1021619

PATIENT
  Age: 30 Year
  Sex: Male

DRUGS (1)
  1. OXYBUTYNIN [Suspect]
     Indication: SUBSTANCE ABUSE
     Route: 065

REACTIONS (2)
  - DRUG ABUSE [None]
  - PSYCHOTIC DISORDER [None]
